FAERS Safety Report 8897465 (Version 1)
Quarter: 2012Q4

REPORT INFORMATION
  Report Type: 
  Country: US (occurrence: US)
  Receive Date: 20121108
  Receipt Date: 20121108
  Transmission Date: 20130627
  Serious: No
  Sender: FDA-Public Use
  Company Number: US-AMGEN-USASP2012028551

PATIENT
  Sex: Female

DRUGS (10)
  1. ENBREL [Suspect]
     Indication: PRODUCT USED FOR UNKNOWN INDICATION
     Dosage: 50 mg, qwk
  2. METHOTREXATE [Concomitant]
     Dosage: 2.5 mg, UNK
  3. SINGULAIR [Concomitant]
     Dosage: 10 mg, UNK
  4. ALBUTEROL                          /00139501/ [Concomitant]
     Dosage: 17 mg, UNK
  5. ADVAIR [Concomitant]
  6. FOLIC ACID [Concomitant]
     Dosage: 1 mg, UNK
  7. SYNTHROID [Concomitant]
     Dosage: 150 mug, UNK
  8. TRAMADOL [Concomitant]
     Dosage: 50 mg, UNK
  9. CYMBALTA [Concomitant]
     Dosage: 20 mg, UNK
  10. RANITIDINE [Concomitant]
     Dosage: 75 mg, UNK

REACTIONS (3)
  - Injection site pruritus [Unknown]
  - Injection site erythema [Unknown]
  - Injection site swelling [Unknown]
